FAERS Safety Report 15756211 (Version 1)
Quarter: 2018Q4

REPORT INFORMATION
  Report Type: Spontaneous
  Country: US (occurrence: US)
  Receive Date: 20181224
  Receipt Date: 20181224
  Transmission Date: 20190205
  Serious: Yes (Other)
  Sender: FDA-Public Use
  Company Number: US-JNJFOC-20181214011

PATIENT
  Age: 63 Year
  Sex: Female
  Weight: 90.72 kg

DRUGS (5)
  1. NEOSPORIN PLUS PAIN RELIEF CREAM [Suspect]
     Active Substance: BACITRACIN ZINC\LIDOCAINE\NEOMYCIN\POLYMYXIN B SULFATE
     Indication: THERMAL BURN
     Dosage: QUARTER OF AN INCH TO AN INCH IN SIZE 2-3 TIMES A DAY AS NEEDED WHEN HAD BURN
     Route: 061
  2. IBUPROFEN. [Concomitant]
     Active Substance: IBUPROFEN
     Indication: ARTHRITIS
     Dosage: AS NEEDED
     Route: 065
  3. ACETAMINOPHEN. [Concomitant]
     Active Substance: ACETAMINOPHEN
     Indication: PAIN
     Dosage: AS NEEDED
     Route: 065
  4. NEOSPORIN PLUS PAIN RELIEF CREAM [Suspect]
     Active Substance: BACITRACIN ZINC\LIDOCAINE\NEOMYCIN\POLYMYXIN B SULFATE
     Indication: SKIN LACERATION
     Dosage: QUARTER OF AN INCH TO AN INCH IN SIZE 2-3 TIMES A DAY AS NEEDED WHEN HAD BURN
     Route: 061
  5. DYAZIDE [Concomitant]
     Active Substance: HYDROCHLOROTHIAZIDE\TRIAMTERENE
     Indication: HYPERTENSION
     Route: 065

REACTIONS (4)
  - Cellulitis [Unknown]
  - Chemical burn [Not Recovered/Not Resolved]
  - Hypersensitivity [Unknown]
  - Drug ineffective [Unknown]

NARRATIVE: CASE EVENT DATE: 2018
